FAERS Safety Report 10950669 (Version 1)
Quarter: 2015Q1

REPORT INFORMATION
  Report Type: Spontaneous
  Country: JP (occurrence: JP)
  Receive Date: 20150324
  Receipt Date: 20150324
  Transmission Date: 20150721
  Serious: Yes (Other)
  Sender: FDA-Public Use
  Company Number: JP-PFIZER INC-2015087914

PATIENT
  Age: 60 Year
  Sex: Male

DRUGS (2)
  1. SUTENT [Suspect]
     Active Substance: SUNITINIB MALATE
     Indication: RENAL CELL CARCINOMA
     Dosage: UNK
     Dates: start: 20110916, end: 20121108
  2. SUTENT [Suspect]
     Active Substance: SUNITINIB MALATE
     Dosage: CYCLIC (5-DAY ADMINISTRATION AND 2-DAY DRUG CESSATION)

REACTIONS (4)
  - Bronchial obstruction [Unknown]
  - Renal cell carcinoma [Unknown]
  - Disease progression [Unknown]
  - Pleural effusion [Unknown]
